FAERS Safety Report 24318807 (Version 2)
Quarter: 2024Q3

REPORT INFORMATION
  Report Type: Spontaneous
  Country: JP (occurrence: JP)
  Receive Date: 20240913
  Receipt Date: 20240917
  Transmission Date: 20241017
  Serious: Yes (Hospitalization)
  Sender: PFIZER
  Company Number: JP-MLMSERVICE-20240902-PI178638-00270-1

PATIENT
  Age: 49 Year
  Sex: Male
  Weight: 61 kg

DRUGS (3)
  1. METHYLPREDNISOLONE SODIUM SUCCINATE [Suspect]
     Active Substance: METHYLPREDNISOLONE SODIUM SUCCINATE
     Indication: Autoimmune hepatitis
     Dosage: 1000 MG, 1X/DAY
     Route: 042
  2. METHYLPREDNISOLONE SODIUM SUCCINATE [Suspect]
     Active Substance: METHYLPREDNISOLONE SODIUM SUCCINATE
     Dosage: GRADUALLY TAPERED
     Route: 042
  3. PREDNISOLONE [Suspect]
     Active Substance: PREDNISOLONE
     Indication: Autoimmune hepatitis
     Dosage: 25 MG, 1X/DAY
     Route: 048

REACTIONS (2)
  - Prinzmetal angina [Recovered/Resolved]
  - Off label use [Unknown]
